FAERS Safety Report 7399246-2 (Version None)
Quarter: 2011Q2

REPORT INFORMATION
  Report Type: 
  Country: None (occurrence: None)
  Receive Date: 20110407
  Receipt Date: 20110404
  Transmission Date: 20111010
  Serious: No
  Sender: FDA-Public Use
  Company Number: US-PFIZER INC-2011074440

PATIENT
  Sex: Female
  Weight: 70.3 kg

DRUGS (3)
  1. TIKOSYN [Suspect]
     Indication: ATRIAL FIBRILLATION
     Dosage: 250 MCG, 2X/DAY
     Dates: start: 20100501
  2. TOPROL-XL [Concomitant]
     Dosage: UNK
  3. COUMADIN [Concomitant]
     Dosage: 5 MG, UNK

REACTIONS (2)
  - FACIAL NEURALGIA [None]
  - SINUSITIS [None]
